FAERS Safety Report 17688913 (Version 5)
Quarter: 2021Q4

REPORT INFORMATION
  Report Type: Report from Study
  Country: CO (occurrence: CO)
  Receive Date: 20200421
  Receipt Date: 20211028
  Transmission Date: 20220303
  Serious: Yes (Other)
  Sender: FDA-Public Use
  Company Number: CO-BIOGEN-2020BI00861665

PATIENT
  Sex: Female
  Weight: 51 kg

DRUGS (6)
  1. TYSABRI [Suspect]
     Active Substance: NATALIZUMAB
     Indication: Multiple sclerosis
     Route: 042
     Dates: start: 20130821
  2. TYSABRI [Suspect]
     Active Substance: NATALIZUMAB
     Route: 042
     Dates: start: 2013
  3. SICCAFLUID [Concomitant]
     Indication: Sjogren^s syndrome
     Route: 048
     Dates: start: 201912, end: 202002
  4. LEVOTHYROXINE [Concomitant]
     Active Substance: LEVOTHYROXINE
     Indication: Product used for unknown indication
     Route: 048
  5. DARIFENACIN [Concomitant]
     Active Substance: DARIFENACIN
     Indication: Urinary incontinence
     Route: 065
     Dates: start: 20200211
  6. LANSOPRAZOLE [Concomitant]
     Active Substance: LANSOPRAZOLE
     Indication: Product used for unknown indication
     Route: 065

REACTIONS (4)
  - Susac^s syndrome [Not Recovered/Not Resolved]
  - Osteoarthritis [Unknown]
  - Scoliosis [Unknown]
  - Intervertebral disc disorder [Unknown]

NARRATIVE: CASE EVENT DATE: 20150101
